FAERS Safety Report 23655597 (Version 3)
Quarter: 2024Q2

REPORT INFORMATION
  Report Type: Spontaneous
  Country: JP (occurrence: JP)
  Receive Date: 20240321
  Receipt Date: 20240405
  Transmission Date: 20240715
  Serious: Yes (Death, Other)
  Sender: FDA-Public Use
  Company Number: JP-GENMAB-2024-00647AA

PATIENT
  Age: 74 Year
  Sex: Male

DRUGS (4)
  1. EPKINLY [Suspect]
     Active Substance: EPCORITAMAB-BYSP
     Indication: Diffuse large B-cell lymphoma
     Dosage: 0.16 MILLIGRAM, SINGLE
     Route: 058
     Dates: start: 20240229, end: 20240229
  2. CORTICOTROPIN [Concomitant]
     Active Substance: CORTICOTROPIN
     Indication: Prophylaxis
     Dosage: UNK, ON DAY 1, DAY 2, DAY 3 AND DAY 4 OF ADMINISTRATION OF EPKINLY SUBCUTANEOUS INJECTION (EPCORITAM
     Dates: start: 20240229, end: 20240303
  3. ANTIHISTAMINES NOS [Concomitant]
     Active Substance: ANTIHISTAMINES NOS
     Indication: Prophylaxis
     Dosage: UNK
     Dates: start: 20240229, end: 20240229
  4. UNSPECIFIED INGREDIENT [Concomitant]
     Active Substance: UNSPECIFIED INGREDIENT
     Indication: Prophylaxis
     Dosage: UNK
     Dates: start: 20240229, end: 20240229

REACTIONS (7)
  - Cytokine release syndrome [Recovering/Resolving]
  - Immune effector cell-associated neurotoxicity syndrome [Recovered/Resolved]
  - Gastrointestinal haemorrhage [Unknown]
  - Disseminated intravascular coagulation [Unknown]
  - Altered state of consciousness [Unknown]
  - Diffuse large B-cell lymphoma [Fatal]
  - Pyrexia [Unknown]

NARRATIVE: CASE EVENT DATE: 20240101
